FAERS Safety Report 16100940 (Version 4)
Quarter: 2020Q3

REPORT INFORMATION
  Report Type: Spontaneous
  Country: US (occurrence: US)
  Receive Date: 20190321
  Receipt Date: 20200901
  Transmission Date: 20201102
  Serious: No
  Sender: FDA-Public Use
  Company Number: US-SA-2019SA071464

PATIENT

DRUGS (2)
  1. DUPIXENT [Suspect]
     Active Substance: DUPILUMAB
     Indication: DERMATITIS ALLERGIC
  2. DUPIXENT [Suspect]
     Active Substance: DUPILUMAB
     Indication: ECZEMA
     Dosage: 300 MG, QOW
     Route: 058
     Dates: start: 20190101

REACTIONS (6)
  - Condition aggravated [Not Recovered/Not Resolved]
  - Tooth extraction [Unknown]
  - Eczema [Recovering/Resolving]
  - Therapeutic response decreased [Recovering/Resolving]
  - Tremor [Not Recovered/Not Resolved]
  - Oral surgery [Unknown]

NARRATIVE: CASE EVENT DATE: 20190301
